FAERS Safety Report 10045345 (Version 1)
Quarter: 2014Q1

REPORT INFORMATION
  Report Type: Spontaneous
  Country: US (occurrence: US)
  Receive Date: 20140328
  Receipt Date: 20140328
  Transmission Date: 20141002
  Serious: Yes (Other)
  Sender: FDA-Public Use
  Company Number: US-TEVA-471507USA

PATIENT
  Sex: 0

DRUGS (1)
  1. CLARAVIS [Suspect]
     Route: 064

REACTIONS (6)
  - Foetal retinoid syndrome [Not Recovered/Not Resolved]
  - Neonatal neuroblastoma [Recovered/Resolved]
  - Metastases to liver [Recovered/Resolved]
  - Foetal exposure during pregnancy [Recovering/Resolving]
  - Congenital central hypoventilation syndrome [Unknown]
  - Small intestinal obstruction [Unknown]
